FAERS Safety Report 6844925-6 (Version None)
Quarter: 2010Q3

REPORT INFORMATION
  Report Type: 
  Country: None (occurrence: None)
  Receive Date: 20100715
  Receipt Date: 20100705
  Transmission Date: 20110219
  Serious: Yes (Other)
  Sender: FDA-Public Use
  Company Number: JP-AMGEN-US400290

PATIENT
  Sex: Female
  Weight: 41 kg

DRUGS (11)
  1. ENBREL [Suspect]
     Indication: RHEUMATOID ARTHRITIS
     Route: 058
     Dates: start: 20091107, end: 20091117
  2. ENBREL [Suspect]
     Route: 058
     Dates: start: 20091117, end: 20100311
  3. RHEUMATREX [Suspect]
     Indication: RHEUMATOID ARTHRITIS
     Route: 048
     Dates: start: 20011116, end: 20100307
  4. LOXONIN [Concomitant]
     Indication: RHEUMATOID ARTHRITIS
     Route: 048
     Dates: start: 20000515
  5. LOXONIN [Concomitant]
     Dosage: 3 TABLETS IN THREE DIVIDED DOSES
     Route: 048
     Dates: start: 20090714
  6. SELBEX [Concomitant]
     Indication: GASTRITIS
     Route: 048
     Dates: start: 20040220
  7. BENET [Concomitant]
     Indication: OSTEOPOROSIS
     Route: 048
     Dates: start: 20040903, end: 20090713
  8. BENET [Concomitant]
     Route: 048
     Dates: start: 20090820
  9. PREDONINE [Concomitant]
     Indication: RHEUMATOID ARTHRITIS
     Route: 048
     Dates: start: 20011115
  10. PREDONINE [Concomitant]
     Dates: start: 20000501
  11. ALFAROL [Concomitant]
     Indication: OSTEOPOROSIS
     Route: 048
     Dates: start: 20061006

REACTIONS (3)
  - ANAEMIA [None]
  - CYSTITIS HAEMORRHAGIC [None]
  - PLATELET COUNT DECREASED [None]
